FAERS Safety Report 20652682 (Version 1)
Quarter: 2022Q1

REPORT INFORMATION
  Report Type: Spontaneous
  Country: DE (occurrence: DE)
  Receive Date: 20220330
  Receipt Date: 20220330
  Transmission Date: 20220424
  Serious: Yes (Life-Threatening, Other)
  Sender: FDA-Public Use
  Company Number: DE-MLMSERVICE-20220318-3441196-1

PATIENT
  Age: 30 Year
  Sex: Male
  Weight: 67 kg

DRUGS (10)
  1. DOCETAXEL [Suspect]
     Active Substance: DOCETAXEL
     Indication: Adenocarcinoma gastric
     Dosage: 85 MG/M2 BIWEEKLY
     Route: 065
  2. DOCETAXEL [Suspect]
     Active Substance: DOCETAXEL
     Indication: Metastases to liver
     Dosage: DOSES WERE REDUCED TO 75%
     Route: 065
  3. OXALIPLATIN [Suspect]
     Active Substance: OXALIPLATIN
     Indication: Adenocarcinoma gastric
     Dosage: DOSES WERE REDUCED TO 75%
     Route: 065
  4. OXALIPLATIN [Suspect]
     Active Substance: OXALIPLATIN
     Indication: Metastases to liver
     Dosage: 85 MG/M2 BIWEEKLY
     Route: 065
  5. FLUOROURACIL [Suspect]
     Active Substance: FLUOROURACIL
     Indication: Adenocarcinoma gastric
     Dosage: DOSES WERE REDUCED TO 75%
     Route: 065
  6. FLUOROURACIL [Suspect]
     Active Substance: FLUOROURACIL
     Indication: Metastases to liver
     Dosage: 2,400 MG/M2 BIWEEKLY
     Route: 065
  7. LEUCOVORIN [Suspect]
     Active Substance: LEUCOVORIN
     Indication: Adenocarcinoma gastric
     Dosage: 200 MG/M2 BIWEEKLY
     Route: 065
  8. LEUCOVORIN [Suspect]
     Active Substance: LEUCOVORIN
     Indication: Metastases to liver
     Dosage: DOSES WERE REDUCED TO 75%
     Route: 065
  9. TRASTUZUMAB [Suspect]
     Active Substance: TRASTUZUMAB
     Indication: Metastases to liver
     Route: 065
  10. TRASTUZUMAB [Suspect]
     Active Substance: TRASTUZUMAB
     Indication: Adenocarcinoma gastric

REACTIONS (12)
  - Tumour lysis syndrome [Unknown]
  - Erythema [Unknown]
  - Skin reaction [Unknown]
  - Eczema [Unknown]
  - Alopecia [Not Recovered/Not Resolved]
  - Paronychia [Unknown]
  - Onychoclasis [Not Recovered/Not Resolved]
  - Ascites [Unknown]
  - Haematotoxicity [Unknown]
  - Hepatic function abnormal [Recovering/Resolving]
  - Onycholysis [Unknown]
  - Polyneuropathy [Not Recovered/Not Resolved]
